FAERS Safety Report 5032777-9 (Version None)
Quarter: 2006Q2

REPORT INFORMATION
  Report Type: 
  Country: None (occurrence: None)
  Receive Date: 20060622
  Receipt Date: 20060608
  Transmission Date: 20061013
  Serious: Yes (Hospitalization)
  Sender: FDA-Public Use
  Company Number: MX-SOLVAY-00306001922

PATIENT
  Age: 60 Year
  Sex: Female

DRUGS (2)
  1. PREDNISONE [Concomitant]
     Indication: COLITIS ULCERATIVE
     Dosage: DAILY DOSE: 60 MILLIGRAM(S)
     Route: 065
  2. MESALAZINE [Suspect]
     Indication: COLITIS ULCERATIVE
     Dosage: DAILY DOSE: 6 GRAM(S)
     Route: 065

REACTIONS (1)
  - COLON CANCER [None]
